FAERS Safety Report 14992353 (Version 1)
Quarter: 2018Q2

REPORT INFORMATION
  Report Type: Spontaneous
  Country: US (occurrence: US)
  Receive Date: 20180609
  Receipt Date: 20180609
  Transmission Date: 20180711
  Serious: No
  Sender: FDA-Public Use
  Company Number: US-SUN PHARMACEUTICAL INDUSTRIES LTD-2017SUN00426

PATIENT
  Age: 70 Year
  Sex: Female

DRUGS (1)
  1. TECHNETIUM TC-99M SULFUR COLLOID KIT [Suspect]
     Active Substance: TECHNETIUM TC-99M SULFUR COLLOID
     Indication: SCAN BONE MARROW
     Dosage: 6.1 MCI, OD
     Route: 042
     Dates: start: 20171122, end: 20171122

REACTIONS (3)
  - Pruritus [Recovering/Resolving]
  - Eye swelling [Recovered/Resolved]
  - Generalised erythema [Recovered/Resolved]

NARRATIVE: CASE EVENT DATE: 20171122
